FAERS Safety Report 6633709 (Version 3)
Quarter: 2014Q1

REPORT INFORMATION
  Report Type: Spontaneous
  Country: US (occurrence: US)
  Receive Date: 20080506
  Receipt Date: 20140228
  Transmission Date: 20141002
  Serious: Yes (Other)
  Sender: FDA-Public Use
  Company Number: US-ELI_LILLY_AND_COMPANY-US200804006094

PATIENT
  Sex: Female

DRUGS (11)
  1. HUMALOG LISPRO [Suspect]
     Indication: DIABETES MELLITUS
     Dosage: UNK
     Route: 065
     Dates: start: 2006
  2. HUMALOG LISPRO [Suspect]
     Dosage: UNK, TID
     Route: 065
  3. LANTUS [Concomitant]
     Dosage: AT DINNER
  4. LANTUS [Concomitant]
     Dosage: AT BEDTIME
  5. ASPIRIN [Concomitant]
     Dosage: 81 MG, UNK
  6. DULCOLAX                           /00064401/ [Concomitant]
  7. LIPITOR [Concomitant]
     Dosage: 40 MG, UNK
  8. LYRICA [Concomitant]
  9. PROTONIX [Concomitant]
     Dosage: 40 MG, UNK
  10. PLAVIX [Concomitant]
     Dosage: 75 MG, UNK
  11. LORAZEPAM [Concomitant]
     Dosage: 0.5 MG, UNK

REACTIONS (6)
  - Blindness [Not Recovered/Not Resolved]
  - Blood glucose increased [Unknown]
  - Visual acuity reduced [Not Recovered/Not Resolved]
  - Nervousness [Not Recovered/Not Resolved]
  - Cataract [Not Recovered/Not Resolved]
  - Underdose [Unknown]
